FAERS Safety Report 8474532-3 (Version None)
Quarter: 2012Q2

REPORT INFORMATION
  Report Type: 
  Country: None (occurrence: None)
  Receive Date: 20120628
  Receipt Date: 20120622
  Transmission Date: 20120825
  Serious: Yes (Disabling)
  Sender: FDA-Public Use
  Company Number: AU-B.I. PHARMACEUTICALS,INC./RIDGEFIELD-2012-AU-00810AU

PATIENT
  Sex: Male
  Weight: 60 kg

DRUGS (7)
  1. LIPITOR [Concomitant]
     Dosage: 8 MG
     Dates: start: 20071217
  2. PRADAXA [Suspect]
     Indication: CEREBROVASCULAR ACCIDENT PROPHYLAXIS
     Dosage: 300 MG
     Dates: start: 20110723
  3. LANOXIN [Concomitant]
     Dates: start: 20071217
  4. MYOCRISIN [Concomitant]
     Indication: RHEUMATOID ARTHRITIS
     Dosage: 0.2381 G
     Route: 030
     Dates: start: 20010806
  5. RAMIPRIL [Concomitant]
     Dosage: 10 MG
     Dates: start: 20071217
  6. METOPROLOL TARTRATE [Concomitant]
     Dosage: 10 G
     Dates: start: 20080228
  7. OMEPRAZOLE (PRISOLEC) [Concomitant]
     Dosage: 20 MG
     Dates: start: 20071217

REACTIONS (3)
  - INFLAMMATORY MARKER INCREASED [None]
  - DIARRHOEA [None]
  - PNEUMONITIS [None]
